FAERS Safety Report 7345401-7 (Version None)
Quarter: 2011Q1

REPORT INFORMATION
  Report Type: 
  Country: None (occurrence: None)
  Receive Date: 20110310
  Receipt Date: 20110214
  Transmission Date: 20110831
  Serious: No
  Sender: FDA-Public Use
  Company Number: US-B.I. PHARMACEUTICALS,INC./RIDGEFIELD-2011-BP-00725BP

PATIENT
  Sex: Female

DRUGS (7)
  1. DETROL [Concomitant]
     Indication: BLADDER DISORDER
     Dosage: 40 MG
     Route: 048
  2. ARICEPT [Concomitant]
     Indication: DEMENTIA
     Dosage: 10 MG
     Route: 048
  3. MULTI-VITAMIN [Concomitant]
     Dosage: DAILY
  4. PRADAXA [Suspect]
     Indication: ATRIAL FIBRILLATION
     Dosage: 300 MG
     Route: 048
     Dates: start: 20101211, end: 20101229
  5. PRADAXA [Suspect]
     Dosage: 150 MG
     Route: 048
     Dates: start: 20110103
  6. ATENOLOL [Concomitant]
     Indication: HYPERTENSION
     Route: 048
  7. CALCIUM [Concomitant]

REACTIONS (4)
  - DIZZINESS [None]
  - ASTHENIA [None]
  - RECTAL HAEMORRHAGE [None]
  - ABDOMINAL PAIN UPPER [None]
